FAERS Safety Report 15261170 (Version 1)
Quarter: 2018Q3

REPORT INFORMATION
  Report Type: Other
  Country: NL (occurrence: NL)
  Receive Date: 20180809
  Receipt Date: 20180809
  Transmission Date: 20181010
  Serious: Yes (Hospitalization)
  Sender: FDA-Public Use
  Company Number: NL-RARE DISEASE THERAPEUTICS, INC.-2053511

PATIENT
  Age: 68 Year
  Sex: Female

DRUGS (4)
  1. CLOFARABINE. [Suspect]
     Active Substance: CLOFARABINE
     Route: 042
     Dates: start: 20160215, end: 20160219
  2. PEGASPARGASE [Suspect]
     Active Substance: PEGASPARGASE
     Route: 065
  3. PURIXAN [Suspect]
     Active Substance: MERCAPTOPURINE
     Indication: ACUTE LYMPHOCYTIC LEUKAEMIA
     Route: 048
     Dates: start: 20170320
  4. METHOTREXATE. [Suspect]
     Active Substance: METHOTREXATE
     Route: 065
     Dates: start: 20170320

REACTIONS (3)
  - Abdominal adhesions [Recovered/Resolved]
  - Small intestine ulcer [Recovered/Resolved]
  - Epstein-Barr viraemia [Recovered/Resolved]

NARRATIVE: CASE EVENT DATE: 20180531
